FAERS Safety Report 8762812 (Version 1)
Quarter: 2012Q4

REPORT INFORMATION
  Report Type: Report from Study
  Country: GB (occurrence: GB)
  Receive Date: 20120830
  Receipt Date: 20120830
  Transmission Date: 20130627
  Serious: Yes (Hospitalization, Other)
  Sender: FDA-Public Use
  Company Number: GB-PFIZER INC-2012208123

PATIENT
  Age: 56 Year
  Sex: Female
  Weight: 86.4 kg

DRUGS (9)
  1. EPIRUBICIN HCL [Suspect]
     Indication: BREAST CANCER
     Dosage: 190 mg, UNK
     Dates: start: 20120615
  2. CYCLOPHOSPHAMIDE [Suspect]
     Indication: BREAST CANCER
     Dosage: 900 mg, UNK
     Dates: start: 20120615
  3. ONDANSETRON [Suspect]
     Indication: VOMITING
     Dosage: 8 mg, UNK
     Dates: start: 20120615, end: 20120615
  4. FLUOROURACIL [Suspect]
     Indication: BREAST CANCER
     Dosage: 950 mg, UNK
     Dates: start: 20120615
  5. DOCETAXEL [Suspect]
     Indication: BREAST CANCER
     Dosage: UNK
     Dates: start: 20120615
  6. DEXAMETHASONE [Suspect]
     Indication: BREAST CANCER
     Dosage: 8 mg, UNK
     Dates: start: 20120615, end: 20120615
  7. PARACETAMOL [Concomitant]
     Dosage: 1 g, UNK
     Dates: start: 20120508
  8. IBUPROFEN [Concomitant]
     Dosage: 200 mg, UNK
     Dates: start: 20120606
  9. RATIOGRASTIM [Concomitant]
     Dosage: 480 mg, UNK
     Dates: start: 20120615, end: 20120620

REACTIONS (1)
  - Gastrooesophageal reflux disease [Recovered/Resolved with Sequelae]
